FAERS Safety Report 22291423 (Version 2)
Quarter: 2023Q2

REPORT INFORMATION
  Report Type: Spontaneous
  Country: CN (occurrence: CN)
  Receive Date: 20230506
  Receipt Date: 20230511
  Transmission Date: 20230721
  Serious: Yes (Hospitalization)
  Sender: FDA-Public Use
  Company Number: CN-002147023-NVSC2023CN102040

PATIENT
  Age: 25 Year
  Sex: Female
  Weight: 75 kg

DRUGS (3)
  1. CARBAMAZEPINE [Suspect]
     Active Substance: CARBAMAZEPINE
     Indication: Epilepsy
     Dosage: 0.2 G, BID
     Route: 048
     Dates: start: 20230116, end: 20230424
  2. VITAMIN B6 [Concomitant]
     Active Substance: PYRIDOXINE HYDROCHLORIDE
     Indication: Product used for unknown indication
     Dosage: 10 MG, TID
     Route: 065
  3. PIRACETAM [Concomitant]
     Active Substance: PIRACETAM
     Indication: Product used for unknown indication
     Dosage: 0.4 G, TID
     Route: 065

REACTIONS (3)
  - Upper respiratory tract infection [Unknown]
  - Epilepsy [Unknown]
  - Alopecia [Unknown]

NARRATIVE: CASE EVENT DATE: 20230116
